FAERS Safety Report 17828569 (Version 1)
Quarter: 2020Q2

REPORT INFORMATION
  Report Type: Spontaneous
  Country: US (occurrence: US)
  Receive Date: 20200527
  Receipt Date: 20200527
  Transmission Date: 20200714
  Serious: No
  Sender: FDA-Public Use
  Company Number: US-SHIRE-US202016936

PATIENT
  Sex: Female

DRUGS (1)
  1. LIALDA [Suspect]
     Active Substance: MESALAMINE
     Indication: COLITIS ULCERATIVE
     Dosage: 1.2 GRAM, 4X/DAY:QID
     Route: 065

REACTIONS (6)
  - Stress [Unknown]
  - Abdominal discomfort [Unknown]
  - Nightmare [Unknown]
  - Joint swelling [Unknown]
  - Drug hypersensitivity [Unknown]
  - Muscle spasms [Unknown]
